FAERS Safety Report 17120667 (Version 3)
Quarter: 2019Q4

REPORT INFORMATION
  Report Type: Spontaneous
  Country: US (occurrence: US)
  Receive Date: 20191206
  Receipt Date: 20191219
  Transmission Date: 20200122
  Serious: Yes (Other)
  Sender: FDA-Public Use
  Company Number: US-CELGENEUS-USA-20191200307

PATIENT
  Age: 92 Year
  Sex: Female
  Weight: 61.29 kg

DRUGS (25)
  1. FIBER [Concomitant]
     Active Substance: PSYLLIUM HUSK
     Indication: PRODUCT USED FOR UNKNOWN INDICATION
     Dosage: 4 DOSAGE FORMS
     Route: 048
  2. VITAMIN D3 [Concomitant]
     Active Substance: CHOLECALCIFEROL
     Indication: PRODUCT USED FOR UNKNOWN INDICATION
     Dosage: 4000 IU (INTERNATIONAL UNIT)
     Route: 048
  3. NEXIUM [Concomitant]
     Active Substance: ESOMEPRAZOLE MAGNESIUM
     Indication: PRODUCT USED FOR UNKNOWN INDICATION
     Route: 048
  4. REVLIMID [Suspect]
     Active Substance: LENALIDOMIDE
     Dosage: 10 MILLIGRAM
     Route: 048
     Dates: start: 20191204
  5. METOPROLOL SUCCINATE 24 HOUR [Concomitant]
     Indication: PRODUCT USED FOR UNKNOWN INDICATION
     Dosage: 25 MILLIGRAM
     Route: 048
  6. PSYLLIUM [Concomitant]
     Active Substance: PLANTAGO SEED
     Indication: PRODUCT USED FOR UNKNOWN INDICATION
     Route: 065
  7. LIDOCAINE. [Concomitant]
     Active Substance: LIDOCAINE
     Indication: PRODUCT USED FOR UNKNOWN INDICATION
     Dosage: 5%
     Route: 061
  8. TYLENOL 8HR [Concomitant]
     Active Substance: ACETAMINOPHEN
     Indication: PAIN
     Route: 048
  9. VITAMIN B12 [Concomitant]
     Active Substance: CYANOCOBALAMIN
     Indication: PRODUCT USED FOR UNKNOWN INDICATION
     Dosage: 5000 MICROGRAM
     Route: 048
  10. VITAMIN B COMPLEX [Concomitant]
     Active Substance: CYANOCOBALAMIN\DEXPANTHENOL\NIACINAMIDE\PYRIDOXINE HYDROCHLORIDE\RIBOFLAVIN 5^-PHOSPHATE SODIUM\THIAMINE HYDROCHLORIDE\VITAMIN B COMPLEX
     Indication: PRODUCT USED FOR UNKNOWN INDICATION
     Dosage: 1 DOSAGE FORMS
     Route: 048
  11. ZANTAC [Concomitant]
     Active Substance: RANITIDINE HYDROCHLORIDE
     Indication: PRODUCT USED FOR UNKNOWN INDICATION
     Route: 048
  12. REVLIMID [Suspect]
     Active Substance: LENALIDOMIDE
     Indication: PLASMA CELL MYELOMA
     Dosage: 15 MILLIGRAM
     Route: 048
     Dates: start: 20191107, end: 20191119
  13. TRAVATAN [Concomitant]
     Active Substance: TRAVOPROST
     Indication: PRODUCT USED FOR UNKNOWN INDICATION
     Route: 065
  14. PRADAXA [Concomitant]
     Active Substance: DABIGATRAN ETEXILATE MESYLATE
     Indication: PRODUCT USED FOR UNKNOWN INDICATION
     Dosage: 300 MILLIGRAM
     Route: 048
  15. TRAVATAN Z [Concomitant]
     Active Substance: TRAVOPROST
     Indication: PRODUCT USED FOR UNKNOWN INDICATION
     Dosage: 0.004 %
     Route: 047
  16. RITUXIMAB. [Suspect]
     Active Substance: RITUXIMAB
     Indication: NON-HODGKIN^S LYMPHOMA STAGE I
     Dosage: DAY 1,8,15,22 OF CYCLE 1, THEN CYCLE 1 OF CYCLE 2-6, THEN EVERY 9 WEEKS FOR 6 MORE CYCLES.
     Route: 048
     Dates: start: 20191105
  17. ALPHAGAN P [Concomitant]
     Active Substance: BRIMONIDINE TARTRATE
     Indication: PRODUCT USED FOR UNKNOWN INDICATION
     Dosage: 3 DOSAGE FORMS
     Route: 047
  18. NORCO [Concomitant]
     Active Substance: ACETAMINOPHEN\HYDROCODONE BITARTRATE
     Indication: PAIN
     Dosage: 5-325MG
     Route: 048
  19. OMEGA 3 [Concomitant]
     Active Substance: OMEGA-3 FATTY ACIDS
     Indication: PRODUCT USED FOR UNKNOWN INDICATION
     Dosage: 1400 MILLIGRAM
     Route: 048
  20. MULTIVITAMINS [Concomitant]
     Active Substance: VITAMINS
     Indication: PRODUCT USED FOR UNKNOWN INDICATION
     Dosage: 1 DOSAGE FORMS
     Route: 048
  21. DORZOLAMIDE [Concomitant]
     Active Substance: DORZOLAMIDE
     Indication: PRODUCT USED FOR UNKNOWN INDICATION
     Dosage: 2% DAILY
     Route: 047
  22. REVLIMID [Suspect]
     Active Substance: LENALIDOMIDE
     Indication: NON-HODGKIN^S LYMPHOMA STAGE I
     Dosage: 15 MILLIGRAM
     Route: 048
     Dates: start: 20191105
  23. PRESERVISION AREDS [Concomitant]
     Active Substance: MINERALS\VITAMINS
     Indication: PRODUCT USED FOR UNKNOWN INDICATION
     Dosage: 250MG-200 UNIT-40-1MG
     Route: 048
  24. CALCIUM CARBONATE. [Concomitant]
     Active Substance: CALCIUM CARBONATE
     Indication: PRODUCT USED FOR UNKNOWN INDICATION
     Dosage: 600 MILLIGRAM
     Route: 048
  25. PEPCID [Concomitant]
     Active Substance: FAMOTIDINE
     Indication: PRODUCT USED FOR UNKNOWN INDICATION
     Dosage: 40 MILLIGRAM
     Route: 048

REACTIONS (2)
  - Peripheral swelling [Unknown]
  - Arthritis bacterial [Unknown]

NARRATIVE: CASE EVENT DATE: 201911
